FAERS Safety Report 10266126 (Version 1)
Quarter: 2014Q2

REPORT INFORMATION
  Report Type: Spontaneous
  Country: GB (occurrence: GB)
  Receive Date: 20140627
  Receipt Date: 20140627
  Transmission Date: 20141212
  Serious: Yes (Hospitalization, Other)
  Sender: FDA-Public Use
  Company Number: GB-MERCK-1406GBR011530

PATIENT
  Age: 54 Year
  Sex: Female
  Weight: 76 kg

DRUGS (7)
  1. DEXAMETHASONE TABLETS BP  2.0MG [Suspect]
     Indication: CHEMOTHERAPY
     Dosage: 40 MG,/M2 INTERVAL 1 DAY
     Route: 048
     Dates: start: 20140318, end: 20140321
  2. BORTEZOMIB [Suspect]
     Indication: PLASMA CELL MYELOMA
     Dosage: 1.3 MG/M2
     Route: 058
     Dates: start: 20131209, end: 20140228
  3. CYCLOPHOSPHAMIDE [Suspect]
     Indication: IMMOBILE
     Dosage: 1000 MG/M2
     Route: 042
     Dates: start: 20140318, end: 20140318
  4. DOXORUBICIN HYDROCHLORIDE [Suspect]
     Dosage: 15 MG/M2 INTERVAL 2/1 DAYS
     Route: 042
     Dates: start: 20140318, end: 20140321
  5. ACYCLOVIR [Concomitant]
     Indication: PROPHYLAXIS
     Dosage: 400 MG, UNK
     Route: 048
     Dates: start: 201312, end: 201403
  6. SULFAMETHOXAZOLE (+) TRIMETHOPRIM [Concomitant]
     Indication: PROPHYLAXIS
     Dosage: 960 MG, UNK
     Route: 048
     Dates: start: 201312, end: 201403
  7. TAVANIC [Concomitant]
     Indication: PROPHYLAXIS
     Dosage: 960 MG, UNK
     Route: 048
     Dates: start: 201312, end: 201403

REACTIONS (2)
  - White blood cell count decreased [Unknown]
  - Pneumonia [Recovered/Resolved]
